FAERS Safety Report 8180810-8 (Version None)
Quarter: 2012Q1

REPORT INFORMATION
  Report Type: 
  Country: None (occurrence: None)
  Receive Date: 20120302
  Receipt Date: 20120227
  Transmission Date: 20120608
  Serious: Yes (Other)
  Sender: FDA-Public Use
  Company Number: BR-ABBOTT-12P-020-0909280-00

PATIENT
  Sex: Female
  Weight: 54 kg

DRUGS (2)
  1. AMIODARONE HYDROCHLORIDE [Concomitant]
     Indication: TACHYCARDIA
     Route: 048
     Dates: start: 20111101
  2. AKINETON [Suspect]
     Indication: PARKINSON'S DISEASE
     Route: 048

REACTIONS (4)
  - SENSORY DISTURBANCE [None]
  - CHILLS [None]
  - TACHYCARDIA [None]
  - COLON CANCER [None]
